FAERS Safety Report 17270950 (Version 2)
Quarter: 2020Q1

REPORT INFORMATION
  Report Type: Report from Study
  Country: None (occurrence: GB)
  Receive Date: 20200115
  Receipt Date: 20200117
  Transmission Date: 20200409
  Serious: Yes (Hospitalization)
  Sender: FDA-Public Use
  Company Number: GB-ABBVIE-19K-167-3010122-00

PATIENT
  Age: 79 Year
  Sex: Male

DRUGS (2)
  1. DUODOPA [Suspect]
     Active Substance: CARBIDOPA\LEVODOPA
     Dosage: 5MG/1ML?20MG/1ML?100ML CASSETTE DAILY
     Route: 050
  2. DUODOPA [Suspect]
     Active Substance: CARBIDOPA\LEVODOPA
     Indication: PARKINSON^S DISEASE
     Dosage: 5MG/1ML?20MG/1ML?100ML CASSETTE DAILY
     Route: 050

REACTIONS (24)
  - Malaise [Unknown]
  - Somnolence [Unknown]
  - Mobility decreased [Unknown]
  - Device issue [Unknown]
  - Diarrhoea [Unknown]
  - Bedridden [Unknown]
  - Chills [Unknown]
  - Stoma site pain [Unknown]
  - Stoma site haemorrhage [Unknown]
  - Hyperhidrosis [Unknown]
  - Abdominal pain [Not Recovered/Not Resolved]
  - Feeling cold [Unknown]
  - Feeling hot [Unknown]
  - Agitation [Unknown]
  - Speech disorder [Unknown]
  - Head titubation [Unknown]
  - Stoma site discharge [Not Recovered/Not Resolved]
  - General physical health deterioration [Unknown]
  - Incontinence [Unknown]
  - Hospitalisation [Unknown]
  - Stoma site infection [Unknown]
  - Abdominal pain upper [Recovered/Resolved]
  - Diarrhoea [Recovered/Resolved]
  - Stoma site erythema [Unknown]

NARRATIVE: CASE EVENT DATE: 2019
